FAERS Safety Report 22067576 (Version 1)
Quarter: 2023Q1

REPORT INFORMATION
  Report Type: Spontaneous
  Country: US (occurrence: US)
  Receive Date: 20230307
  Receipt Date: 20230307
  Transmission Date: 20230418
  Serious: Yes (Hospitalization)
  Sender: FDA-Public Use
  Company Number: US-ABBVIE-4330253

PATIENT
  Age: 73 Year
  Sex: Female

DRUGS (2)
  1. IMBRUVICA [Suspect]
     Active Substance: IBRUTINIB
     Indication: Product used for unknown indication
     Dosage: FORM STRENGTH: 140 MG
     Route: 048
     Dates: start: 20230130
  2. TERBINAFINE [Suspect]
     Active Substance: TERBINAFINE
     Indication: Onychomycosis

REACTIONS (2)
  - Hepatic cancer metastatic [Unknown]
  - Onychomycosis [Unknown]

NARRATIVE: CASE EVENT DATE: 20230214
